FAERS Safety Report 6690423-2 (Version None)
Quarter: 2010Q2

REPORT INFORMATION
  Report Type: 
  Country: None (occurrence: None)
  Receive Date: 20100421
  Receipt Date: 20091117
  Transmission Date: 20101027
  Serious: No
  Sender: FDA-Public Use
  Company Number: US-ASTRAZENECA-2009SE27087

PATIENT
  Age: 28222 Day
  Sex: Male
  Weight: 84 kg

DRUGS (9)
  1. BICALUTAMIDE [Suspect]
     Route: 048
     Dates: start: 20090302, end: 20090302
  2. LEUPROLIDE ACETATE [Suspect]
     Indication: PROSTATE CANCER
     Route: 058
     Dates: start: 20090302, end: 20090302
  3. ATENOLOL [Concomitant]
  4. SIMVASTATIN [Concomitant]
  5. AMLODIPINE [Concomitant]
  6. VITAMIN D [Concomitant]
  7. CALCIUM PHOSPHATE [Concomitant]
  8. ERGOCALCIFEROL [Concomitant]
  9. ASPIRIN [Concomitant]

REACTIONS (7)
  - ASTHENIA [None]
  - BREAST ENLARGEMENT [None]
  - DECREASED ACTIVITY [None]
  - HOT FLUSH [None]
  - NOCTURIA [None]
  - WEIGHT INCREASED [None]
  - WEIGHT LOSS POOR [None]
